FAERS Safety Report 6227751-0 (Version None)
Quarter: 2009Q2

REPORT INFORMATION
  Report Type: 
  Country: None (occurrence: None)
  Receive Date: 20090612
  Receipt Date: 20090415
  Transmission Date: 20091009
  Serious: No
  Sender: FDA-Public Use
  Company Number: US-BAYER-200911565BCC

PATIENT
  Age: 2 Year
  Sex: Male

DRUGS (1)
  1. ALEVE (CAPLET) [Suspect]
     Indication: ACCIDENTAL DRUG INTAKE BY CHILD
     Dosage: CHILD GOT 1 OR 2 ALEVE CAPLETS ONCE
     Route: 048
     Dates: start: 20090414, end: 20090414

REACTIONS (1)
  - ACCIDENTAL DRUG INTAKE BY CHILD [None]
